FAERS Safety Report 9787880 (Version 1)
Quarter: 2013Q4

REPORT INFORMATION
  Report Type: Spontaneous
  Country: US (occurrence: US)
  Receive Date: 20131230
  Receipt Date: 20131230
  Transmission Date: 20140711
  Serious: No
  Sender: FDA-Public Use
  Company Number: US-BAYER-2013-155825

PATIENT
  Age: 58 Year
  Sex: Male
  Weight: 90.7 kg

DRUGS (4)
  1. ALEVE CAPLET [Suspect]
     Indication: TENDONITIS
     Dosage: 3 DF, TID
     Route: 048
     Dates: end: 20131214
  2. SYMBICORT [Concomitant]
  3. VENTOLIN [Concomitant]
  4. URISTAT [Concomitant]
     Dosage: UNK UNK, PRN

REACTIONS (4)
  - Eyelid oedema [Not Recovered/Not Resolved]
  - Extra dose administered [None]
  - Incorrect drug administration duration [None]
  - Off label use [None]
